FAERS Safety Report 5888220-0 (Version None)
Quarter: 2008Q3

REPORT INFORMATION
  Report Type: 
  Country: None (occurrence: None)
  Receive Date: 20080918
  Receipt Date: 20080905
  Transmission Date: 20090109
  Serious: Yes (Hospitalization)
  Sender: FDA-Public Use
  Company Number: FR-JNJFOC-20080901056

PATIENT
  Age: 20 Year
  Sex: Male

DRUGS (4)
  1. IXPRIM [Suspect]
     Indication: PAIN
     Dosage: 37.5/325 MG TABLETS
     Route: 048
     Dates: start: 20080803, end: 20080804
  2. LANTUS [Suspect]
     Indication: TYPE 1 DIABETES MELLITUS
     Route: 065
  3. HUMALOG [Suspect]
     Indication: TYPE 1 DIABETES MELLITUS
     Route: 065
  4. ARIXTRA [Concomitant]
     Indication: JOINT SPRAIN
     Route: 065

REACTIONS (1)
  - HYPOGLYCAEMIA [None]
